FAERS Safety Report 6636962-1 (Version None)
Quarter: 2010Q1

REPORT INFORMATION
  Report Type: 
  Country: None (occurrence: None)
  Receive Date: 20100301
  Receipt Date: 20090924
  Transmission Date: 20100710
  Serious: Yes (Hospitalization)
  Sender: FDA-Public Use
  Company Number: RB-20846-2009

PATIENT
  Age: 1 Day

DRUGS (2)
  1. SUBOXONE [Suspect]
     Indication: DRUG DEPENDENCE
     Dosage: 16 MG TRANSPLACENTAL
     Route: 064
     Dates: start: 20081101, end: 20090415
  2. SUBUTEX [Suspect]
     Indication: DRUG DEPENDENCE
     Dosage: 16 MG TRANSPLACENTAL
     Route: 064
     Dates: start: 20090416, end: 20090914

REACTIONS (2)
  - DRUG EXPOSURE DURING PREGNANCY [None]
  - DRUG WITHDRAWAL SYNDROME NEONATAL [None]
